FAERS Safety Report 5091984-X (Version None)
Quarter: 2006Q3

REPORT INFORMATION
  Report Type: 
  Country: None (occurrence: None)
  Receive Date: 20060825
  Receipt Date: 20060810
  Transmission Date: 20061208
  Serious: Yes (Other)
  Sender: FDA-Public Use
  Company Number: FR200603004062

PATIENT
  Age: 72 Year
  Sex: Male
  Weight: 85 kg

DRUGS (10)
  1. ALIMTA [Suspect]
     Indication: NON-SMALL CELL LUNG CANCER
     Dosage: 500 MG/M2, OTHER, INTRAVENOUS
     Route: 042
     Dates: start: 20060105, end: 20060105
  2. ALIMTA [Suspect]
  3. KARDEGIC (ACETYLSALICYLIC LYSINE) [Concomitant]
  4. SIMVASTATIN [Concomitant]
  5. DILTIAZEM [Concomitant]
  6. ZOLPIDEM TARTRATE [Concomitant]
  7. BRONCHODUAL (FENOTEROL HYDROBROMIDE, IPRTROPIUM BROMIDE) [Concomitant]
  8. FOLIC ACID [Concomitant]
  9. CYANOCOBALAMIN [Concomitant]
  10. DEXAMETHASONE TAB [Concomitant]

REACTIONS (4)
  - CELLULITIS [None]
  - CONJUNCTIVITIS [None]
  - DACRYOSTENOSIS ACQUIRED [None]
  - ERYSIPELOID [None]
